FAERS Safety Report 10053259 (Version 2)
Quarter: 2014Q2

REPORT INFORMATION
  Report Type: Spontaneous
  Country: GB (occurrence: GB)
  Receive Date: 20140402
  Receipt Date: 20140417
  Transmission Date: 20141212
  Serious: Yes (Other)
  Sender: FDA-Public Use
  Company Number: GB-TEVA-472427ISR

PATIENT
  Age: 75 Year
  Sex: Female
  Weight: 52 kg

DRUGS (7)
  1. PRAVASTATIN SODIUM [Suspect]
     Indication: TYPE IIA HYPERLIPIDAEMIA
     Dosage: 40 MILLIGRAM DAILY;
     Dates: start: 1989
  2. PRAVASTATIN SODIUM [Suspect]
     Dosage: 20 MILLIGRAM DAILY;
  3. ADCAL-D3 [Concomitant]
  4. OMACOR [Concomitant]
  5. ASPIRIN [Concomitant]
  6. BETAHISTINE [Concomitant]
     Dosage: 32 MILLIGRAM DAILY;
  7. BISOPROLOL [Concomitant]

REACTIONS (5)
  - Hypoaesthesia [Not Recovered/Not Resolved]
  - Muscle spasms [Not Recovered/Not Resolved]
  - Paraesthesia [Not Recovered/Not Resolved]
  - Burning sensation [Not Recovered/Not Resolved]
  - Back pain [Not Recovered/Not Resolved]
